FAERS Safety Report 4832287-5 (Version None)
Quarter: 2005Q4

REPORT INFORMATION
  Report Type: 
  Country: None (occurrence: None)
  Receive Date: 20051116
  Receipt Date: 20051116
  Transmission Date: 20060501
  Serious: Yes (Death)
  Sender: FDA-Public Use
  Company Number: None

PATIENT
  Age: 73 Year
  Sex: Female
  Weight: 77.1115 kg

DRUGS (1)
  1. ULTRACET [Suspect]
     Indication: PAIN
     Dosage: ONE UP TO FOUR A DAY AS NEEDED

REACTIONS (1)
  - INTERVERTEBRAL DISC PROTRUSION [None]
